FAERS Safety Report 4465266-0 (Version None)
Quarter: 2004Q3

REPORT INFORMATION
  Report Type: 
  Country: None (occurrence: None)
  Receive Date: 20040929
  Receipt Date: 20040909
  Transmission Date: 20050211
  Serious: Yes (Death, Hospitalization)
  Sender: FDA-Public Use
  Company Number: USA040876592

PATIENT
  Age: 80 Year
  Sex: Male
  Weight: 73 kg

DRUGS (1)
  1. GEMZAR-IV (GEMCTIABINE)(GEMCITABINE HYDROCHLORIDE) [Suspect]
     Indication: ADENOCARCINOMA PANCREAS
     Dosage: 1000 MG/M2 OTHER
     Route: 050
     Dates: start: 20030101, end: 20040101

REACTIONS (1)
  - RESPIRATORY FAILURE [None]
